FAERS Safety Report 8175893-5 (Version None)
Quarter: 2012Q1

REPORT INFORMATION
  Report Type: 
  Country: None (occurrence: None)
  Receive Date: 20120301
  Receipt Date: 20120222
  Transmission Date: 20120608
  Serious: Yes (Hospitalization)
  Sender: FDA-Public Use
  Company Number: US-US-EMD SERONO, INC.-7114819

PATIENT
  Sex: Female
  Weight: 105 kg

DRUGS (11)
  1. VITAMIN E [Concomitant]
  2. LIDODERM [Concomitant]
     Indication: PAIN
  3. CALCIUM [Concomitant]
  4. OXYCODONE HCL [Concomitant]
     Indication: PAIN
  5. GABAPENTIN [Concomitant]
  6. PRILOSEC [Concomitant]
     Indication: ABDOMINAL DISCOMFORT
  7. LAMOTRIGINE [Concomitant]
  8. REBIF [Suspect]
     Indication: MULTIPLE SCLEROSIS
     Route: 058
     Dates: start: 20120207
  9. DETROL LA [Concomitant]
     Indication: URINARY INCONTINENCE
  10. DIAZEPAM [Concomitant]
     Indication: MUSCLE SPASMS
  11. CYMBALTA [Concomitant]
     Indication: DEPRESSION

REACTIONS (1)
  - CONVULSION [None]
